FAERS Safety Report 25912488 (Version 1)
Quarter: 2025Q4

REPORT INFORMATION
  Report Type: Spontaneous
  Country: EU (occurrence: EU)
  Receive Date: 20251013
  Receipt Date: 20251013
  Transmission Date: 20260118
  Serious: Yes (Other)
  Sender: CHATTEM
  Company Number: EU-OPELLA-2025OHG029766

PATIENT
  Sex: Male
  Weight: 78.5 kg

DRUGS (44)
  1. XYZAL [Suspect]
     Active Substance: LEVOCETIRIZINE DIHYDROCHLORIDE
     Indication: Product used for unknown indication
     Dosage: ONCE DAILY (QD)
     Dates: start: 20250507, end: 20250905
  2. VENLAFAXINE HYDROCHLORIDE [Suspect]
     Active Substance: VENLAFAXINE HYDROCHLORIDE
     Indication: Product used for unknown indication
     Dosage: ONCE DAILY (QD)
     Dates: start: 20250508, end: 20250514
  3. VENLAFAXINE HYDROCHLORIDE [Suspect]
     Active Substance: VENLAFAXINE HYDROCHLORIDE
     Dosage: ONCE DAILY (QD)
     Dates: start: 20250730, end: 20250814
  4. VENLAFAXINE HYDROCHLORIDE [Suspect]
     Active Substance: VENLAFAXINE HYDROCHLORIDE
     Dosage: ONCE DAILY (QD)
     Dates: start: 20250815, end: 20250905
  5. VENLAFAXINE HYDROCHLORIDE [Suspect]
     Active Substance: VENLAFAXINE HYDROCHLORIDE
     Dosage: ONCE DAILY (QD)
     Dates: end: 20250729
  6. PREGABALIN [Suspect]
     Active Substance: PREGABALIN
     Indication: Product used for unknown indication
     Dosage: ONCE DAILY (QD)
     Dates: start: 20250513, end: 20250513
  7. PREGABALIN [Suspect]
     Active Substance: PREGABALIN
     Dosage: ONCE DAILY (QD)
     Dates: start: 20250514, end: 20250514
  8. PREGABALIN [Suspect]
     Active Substance: PREGABALIN
     Dosage: ONCE DAILY (QD)
     Dates: start: 20250515, end: 20250519
  9. PREGABALIN [Suspect]
     Active Substance: PREGABALIN
     Dosage: ONCE DAILY (QD)
     Dates: start: 20250520, end: 20250520
  10. PREGABALIN [Suspect]
     Active Substance: PREGABALIN
     Dosage: ONCE DAILY (QD)
     Dates: start: 20250521, end: 20250521
  11. PREGABALIN [Suspect]
     Active Substance: PREGABALIN
     Dosage: ONCE DAILY (QD)
     Dates: start: 20250522, end: 20250527
  12. PREGABALIN [Suspect]
     Active Substance: PREGABALIN
     Dosage: ONCE DAILY (QD)
     Dates: start: 20250528, end: 20250601
  13. PREGABALIN [Suspect]
     Active Substance: PREGABALIN
     Dosage: ONCE DAILY (QD)
     Dates: start: 20250602, end: 20250602
  14. PREGABALIN [Suspect]
     Active Substance: PREGABALIN
     Dosage: ONCE DAILY (QD)
     Dates: start: 20250603, end: 20250604
  15. PREGABALIN [Suspect]
     Active Substance: PREGABALIN
     Dosage: ONCE DAILY (QD)
     Dates: start: 20250605, end: 20250804
  16. PREGABALIN [Suspect]
     Active Substance: PREGABALIN
     Dosage: ONCE DAILY (QD)
     Dates: start: 20250507, end: 20250507
  17. PREGABALIN [Suspect]
     Active Substance: PREGABALIN
     Dosage: ONCE DAILY (QD)
     Dates: start: 20250508, end: 20250508
  18. PREGABALIN [Suspect]
     Active Substance: PREGABALIN
     Dosage: ONCE DAILY (QD)
     Dates: start: 20250509, end: 20250509
  19. PREGABALIN [Suspect]
     Active Substance: PREGABALIN
     Dosage: ONCE DAILY (QD)
     Dates: start: 20250510, end: 20250512
  20. PREGABALIN [Suspect]
     Active Substance: PREGABALIN
     Dosage: ONCE DAILY (QD)
     Dates: start: 20250805, end: 20250807
  21. PREGABALIN [Suspect]
     Active Substance: PREGABALIN
     Dosage: ONCE DAILY (QD)
     Dates: start: 20250808, end: 20250812
  22. PREGABALIN [Suspect]
     Active Substance: PREGABALIN
     Dosage: ONCE DAILY (QD)
     Dates: start: 20250813, end: 20250828
  23. PREGABALIN [Suspect]
     Active Substance: PREGABALIN
     Dosage: ONCE DAILY (QD)
     Dates: start: 20250829, end: 20250905
  24. MIRTAZAPINE [Suspect]
     Active Substance: MIRTAZAPINE
     Indication: Product used for unknown indication
     Dosage: ONCE DAILY (QD)
     Dates: end: 20250905
  25. MIRTAZAPINE [Suspect]
     Active Substance: MIRTAZAPINE
     Dates: start: 20250507, end: 20250810
  26. GINKGO [Suspect]
     Active Substance: GINKGO
     Indication: Product used for unknown indication
     Dosage: ONCE DAILY (QD)
     Dates: start: 20250507, end: 20250618
  27. MELATONIN [Suspect]
     Active Substance: MELATONIN
     Indication: Product used for unknown indication
     Dosage: ONCE DAILY (QD)
     Dates: end: 20250905
  28. MELATONIN [Suspect]
     Active Substance: MELATONIN
     Dosage: ONCE DAILY (QD)
     Dates: start: 20250507, end: 20250729
  29. IVABRADINE [Suspect]
     Active Substance: IVABRADINE
     Indication: Product used for unknown indication
     Dosage: ONCE DAILY (QD)
     Dates: start: 20250507, end: 20250519
  30. IVABRADINE [Suspect]
     Active Substance: IVABRADINE
     Dosage: ONCE DAILY (QD)
     Dates: start: 20250520, end: 20250715
  31. ARIPIPRAZOLE [Suspect]
     Active Substance: ARIPIPRAZOLE
     Indication: Product used for unknown indication
     Dosage: ONCE DAILY (QD)
     Dates: start: 20250507, end: 20250516
  32. ARIPIPRAZOLE [Suspect]
     Active Substance: ARIPIPRAZOLE
     Dosage: ONCE DAILY (QD)
     Dates: start: 20250517, end: 20250905
  33. KETOTIFEN [Suspect]
     Active Substance: KETOTIFEN
     Indication: Product used for unknown indication
     Dosage: ONCE DAILY (QD)
     Dates: start: 20250507, end: 20250715
  34. LORAZEPAM [Suspect]
     Active Substance: LORAZEPAM
     Indication: Product used for unknown indication
     Dosage: ONCE DAILY (QD)
     Dates: start: 20250619, end: 20250715
  35. LORAZEPAM [Suspect]
     Active Substance: LORAZEPAM
     Dosage: ONCE DAILY (QD)
     Dates: end: 20250609
  36. LORAZEPAM [Suspect]
     Active Substance: LORAZEPAM
     Dosage: ONCE DAILY (QD)
     Dates: start: 20250610, end: 20250611
  37. LORAZEPAM [Suspect]
     Active Substance: LORAZEPAM
     Dosage: ONCE DAILY (QD)
     Dates: start: 20250612, end: 20250614
  38. LORAZEPAM [Suspect]
     Active Substance: LORAZEPAM
     Dosage: ONCE DAILY (QD)
     Dates: start: 20250615, end: 20250618
  39. THROMBO ASA (ACETYLSALICYLIC ACID) [Concomitant]
     Indication: Product used for unknown indication
     Dates: start: 20250507, end: 20250905
  40. LASEA (LAVANDULA ANGUSTIFOLIA OIL) [Concomitant]
     Indication: Product used for unknown indication
     Dates: start: 20250507, end: 20250905
  41. DIOSMIN [Concomitant]
     Active Substance: DIOSMIN
     Indication: Product used for unknown indication
     Dates: start: 20250507, end: 20250905
  42. NALTREXON (NALTREXONE HYDROCHLORIDE) [Concomitant]
     Indication: Product used for unknown indication
     Dates: start: 20250507, end: 20250613
  43. KETAMINE [Concomitant]
     Active Substance: KETAMINE
     Indication: Product used for unknown indication
     Dates: start: 20250513, end: 20250731
  44. INHIXA (ENOXAPARIN SODIUM) [Concomitant]
     Indication: Product used for unknown indication
     Dates: start: 20250513, end: 20250609

REACTIONS (3)
  - Constipation [Recovering/Resolving]
  - Urinary hesitation [Recovering/Resolving]
  - Off label use [Unknown]

NARRATIVE: CASE EVENT DATE: 20250507
